FAERS Safety Report 23546059 (Version 2)
Quarter: 2025Q1

REPORT INFORMATION
  Report Type: Spontaneous
  Country: US (occurrence: US)
  Receive Date: 20240220
  Receipt Date: 20250122
  Transmission Date: 20250409
  Serious: No
  Sender: MYLAN
  Company Number: US-MYLANLABS-2024M1010436

PATIENT
  Sex: Female
  Weight: 59.87 kg

DRUGS (1)
  1. ESTRADIOL TRANSDERMAL SYSTEM [Suspect]
     Active Substance: ESTRADIOL
     Indication: Hysterectomy
     Route: 062
     Dates: start: 20231207

REACTIONS (6)
  - Hormone level abnormal [Unknown]
  - Application site pain [Unknown]
  - Breast tenderness [Unknown]
  - Application site irritation [Unknown]
  - Application site erythema [Unknown]
  - Application site dermatitis [Unknown]
